FAERS Safety Report 8431389-4 (Version None)
Quarter: 2012Q2

REPORT INFORMATION
  Report Type: 
  Country: None (occurrence: None)
  Receive Date: 20120613
  Receipt Date: 20120608
  Transmission Date: 20120825
  Serious: Yes (Other)
  Sender: FDA-Public Use
  Company Number: US-PFIZER INC-2012083208

PATIENT
  Sex: Female
  Weight: 56.689 kg

DRUGS (5)
  1. CHANTIX [Suspect]
     Dosage: UNK
     Dates: start: 20120101, end: 20120501
  2. CHANTIX [Suspect]
     Indication: SMOKING CESSATION THERAPY
     Dosage: 0.5 MG DAILY
     Dates: start: 20120329, end: 20120101
  3. XANAX [Suspect]
     Indication: ANXIETY
     Dosage: 0.5 MG ONE TO TWO TIMES A DAY AS NEEDED
     Dates: start: 20100101
  4. XANAX [Suspect]
     Indication: DEPRESSION
  5. CHANTIX [Suspect]
     Dosage: 0.5 MG, 2X/DAY
     Dates: start: 20120101, end: 20120101

REACTIONS (7)
  - CRYING [None]
  - DEPRESSION [None]
  - WEIGHT DECREASED [None]
  - NAUSEA [None]
  - MALAISE [None]
  - ABNORMAL DREAMS [None]
  - FRUSTRATION [None]
